FAERS Safety Report 17367760 (Version 1)
Quarter: 2020Q1

REPORT INFORMATION
  Report Type: Spontaneous
  Country: US (occurrence: US)
  Receive Date: 20200203
  Receipt Date: 20200203
  Transmission Date: 20200409
  Serious: Yes (Hospitalization)
  Sender: FDA-Public Use
  Company Number: None

PATIENT
  Age: 57 Year
  Sex: Male

DRUGS (4)
  1. TRELEGY ELLIPTA [Concomitant]
     Active Substance: FLUTICASONE FUROATE\UMECLIDINIUM BROMIDE\VILANTEROL TRIFENATATE
  2. HYCAMTIN [Suspect]
     Active Substance: TOPOTECAN HYDROCHLORIDE
     Indication: RENAL CANCER
     Route: 048
     Dates: start: 20200109
  3. FLUCONAZOLE. [Concomitant]
     Active Substance: FLUCONAZOLE
  4. HYCAMTIN [Suspect]
     Active Substance: TOPOTECAN HYDROCHLORIDE
     Indication: RENAL CANCER
     Route: 048
     Dates: start: 20200109

REACTIONS (4)
  - Pneumonia [None]
  - Septic shock [None]
  - White blood cell count decreased [None]
  - Infection [None]

NARRATIVE: CASE EVENT DATE: 20200121
